FAERS Safety Report 19955598 (Version 2)
Quarter: 2021Q4

REPORT INFORMATION
  Report Type: Report from Study
  Country: JP (occurrence: JP)
  Receive Date: 20211013
  Receipt Date: 20211210
  Transmission Date: 20220303
  Serious: Yes (Other)
  Sender: FDA-Public Use
  Company Number: JP-CELLTRION INC.-2021JP013941

PATIENT

DRUGS (13)
  1. INVESTIGATIONAL BIOSIMILARS [Suspect]
     Active Substance: INVESTIGATIONAL BIOSIMILARS
     Indication: HER2 positive gastric cancer
     Dosage: 477 MILLIGRAM, QD
     Route: 041
     Dates: start: 20210525, end: 20210525
  2. INVESTIGATIONAL BIOSIMILARS [Suspect]
     Active Substance: INVESTIGATIONAL BIOSIMILARS
     Dosage: 358 MILLIGRAM, QD
     Route: 041
     Dates: start: 20210617, end: 20210617
  3. INVESTIGATIONAL BIOSIMILARS [Suspect]
     Active Substance: INVESTIGATIONAL BIOSIMILARS
     Dosage: 358 MILLIGRAM, QD
     Route: 041
     Dates: start: 20210709, end: 20210709
  4. OXALIPLATIN [Suspect]
     Active Substance: OXALIPLATIN
     Indication: HER2 positive gastric cancer
     Dosage: 167 MILLIGRAM, QD
     Route: 041
     Dates: start: 20210525, end: 20210525
  5. OXALIPLATIN [Suspect]
     Active Substance: OXALIPLATIN
     Dosage: 167 MILLIGRAM, QD
     Route: 041
     Dates: start: 20210617, end: 20210617
  6. OXALIPLATIN [Suspect]
     Active Substance: OXALIPLATIN
     Dosage: 167 MILLIGRAM, QD
     Route: 041
     Dates: start: 20210709, end: 20210709
  7. GIMERACIL\OTERACIL\TEGAFUR [Suspect]
     Active Substance: GIMERACIL\OTERACIL\TEGAFUR
     Indication: HER2 positive gastric cancer
     Dosage: 80 MILLIGRAM, QD
     Route: 048
     Dates: start: 20210525, end: 20210609
  8. GIMERACIL\OTERACIL\TEGAFUR [Suspect]
     Active Substance: GIMERACIL\OTERACIL\TEGAFUR
     Dosage: 80 MILLIGRAM, QD
     Route: 048
     Dates: start: 20210617, end: 20210702
  9. GIMERACIL\OTERACIL\TEGAFUR [Suspect]
     Active Substance: GIMERACIL\OTERACIL\TEGAFUR
     Dosage: 80 MILLIGRAM, QD
     Route: 048
     Dates: start: 20210709, end: 20210724
  10. AMINO ACIDS\CARBOHYDRATES\MINERALS\SOYBEAN OIL\VITAMINS [Concomitant]
     Active Substance: AMINO ACIDS\CARBOHYDRATES\MINERALS\SOYBEAN OIL\VITAMINS
     Indication: Feeding disorder
     Dosage: UNK
  11. NEXIUM [Concomitant]
     Active Substance: ESOMEPRAZOLE MAGNESIUM
     Indication: Gastrooesophageal reflux disease
     Dosage: UNK
  12. MOVICOL [Concomitant]
     Active Substance: POLYETHYLENE GLYCOL 3350\POTASSIUM CHLORIDE\SODIUM BICARBONATE\SODIUM CHLORIDE
     Indication: Constipation
     Dosage: UNK
     Dates: end: 20210603
  13. PRIMPERAN [Concomitant]
     Active Substance: METOCLOPRAMIDE HYDROCHLORIDE
     Indication: Prophylaxis of nausea and vomiting
     Dosage: UNK
     Dates: start: 20210527

REACTIONS (11)
  - Hypokalaemia [Not Recovered/Not Resolved]
  - Haematuria [Recovered/Resolved]
  - Malaise [Recovered/Resolved]
  - Malaise [Not Recovered/Not Resolved]
  - Peripheral sensory neuropathy [Recovered/Resolved]
  - Nausea [Recovering/Resolving]
  - Diarrhoea [Not Recovered/Not Resolved]
  - Pain [Recovering/Resolving]
  - Urinary tract infection [Recovered/Resolved]
  - Oedema [Recovered/Resolved]
  - Nausea [Recovered/Resolved]

NARRATIVE: CASE EVENT DATE: 20210526
